FAERS Safety Report 20886733 (Version 5)
Quarter: 2022Q2

REPORT INFORMATION
  Report Type: Report from Study
  Country: RO (occurrence: RO)
  Receive Date: 20220528
  Receipt Date: 20220624
  Transmission Date: 20220720
  Serious: Yes (Life-Threatening)
  Sender: FDA-Public Use
  Company Number: RO-AMGEN-ROUCT2022090771

PATIENT
  Age: 8 Year
  Sex: Male

DRUGS (22)
  1. CARFILZOMIB [Suspect]
     Active Substance: CARFILZOMIB
     Indication: Acute lymphocytic leukaemia
     Dosage: 68 MILLIGRAM
     Route: 042
     Dates: start: 20220511
  2. VINCRISTINE [Suspect]
     Active Substance: VINCRISTINE
     Indication: Acute lymphocytic leukaemia
     Dosage: 1.8 MILLIGRAM
     Route: 065
     Dates: start: 20220511, end: 20220518
  3. DEXAMETHASONE [Concomitant]
     Active Substance: DEXAMETHASONE
     Dosage: 3.6 MILLIGRAM
     Dates: start: 20220511, end: 20220524
  4. DOXORUBICIN [Concomitant]
     Active Substance: DOXORUBICIN
     Dosage: 73 MILLIGRAM
     Dates: start: 20220512, end: 20220512
  5. PEG/L-ASPARAGINASE [Concomitant]
     Active Substance: PEGASPARGASE
     Dosage: 3075 INTERNATIONAL UNIT
     Dates: start: 20220514, end: 20220514
  6. METHOTREXATE [Concomitant]
     Active Substance: METHOTREXATE
     Dosage: 12 MILLIGRAM
     Route: 037
     Dates: start: 20220518, end: 20220518
  7. ACYCLOVIR [Concomitant]
     Active Substance: ACYCLOVIR
     Dosage: 200 MILLIGRAM
     Route: 048
     Dates: start: 20220505, end: 20220611
  8. FLUCONAZOLE [Concomitant]
     Active Substance: FLUCONAZOLE
     Dosage: 200 MILLIGRAM
     Route: 048
     Dates: start: 20220505, end: 20220524
  9. ALLOPURINOL [Concomitant]
     Active Substance: ALLOPURINOL
     Dosage: 100 MILLIGRAM
     Route: 048
     Dates: start: 20220511, end: 20220517
  10. GRANISETRON [Concomitant]
     Active Substance: GRANISETRON
     Dosage: UNK
     Route: 042
     Dates: start: 20220511, end: 20220611
  11. PANTOPRAZOLE SODIUM [Concomitant]
     Active Substance: PANTOPRAZOLE SODIUM
     Dosage: 20 MILLIGRAM
     Route: 042
     Dates: start: 20220511, end: 20220611
  12. DICARBOCALM [Concomitant]
     Dosage: UNK,
     Route: 048
     Dates: start: 20220523, end: 20220611
  13. URSODIOL [Concomitant]
     Active Substance: URSODIOL
     Dosage: 250 MILLIGRAM
     Route: 048
     Dates: start: 20220505, end: 20220511
  14. MAGNESIUM ASPARTATE\POTASSIUM ASPARTATE [Concomitant]
     Active Substance: MAGNESIUM ASPARTATE\POTASSIUM ASPARTATE
     Dosage: 1 UNK
     Route: 048
     Dates: start: 20220523, end: 20220611
  15. MANNITOL [Concomitant]
     Active Substance: MANNITOL
     Dosage: 80, 60, 40 MILLILITER
     Route: 042
     Dates: start: 20220530, end: 20220608
  16. LEVOFLOXACIN [Concomitant]
     Active Substance: LEVOFLOXACIN
     Dosage: 250 MILLIGRAM
     Route: 048
     Dates: start: 20220505, end: 20220523
  17. AMINO ACIDS, SOURCE UNSPECIFIED [Concomitant]
     Active Substance: AMINO ACIDS, SOURCE UNSPECIFIED
     Dosage: 300 MILLILITER
     Route: 042
     Dates: start: 20220513, end: 20220523
  18. EBASTINE [Concomitant]
     Active Substance: EBASTINE
     Dosage: 1 UNK
     Route: 048
     Dates: start: 20220514, end: 20220520
  19. IBUPROFEN [Concomitant]
     Active Substance: IBUPROFEN
     Dosage: 1 UNK
     Route: 048
     Dates: start: 20220521, end: 20220521
  20. FUROSEMIDE [Concomitant]
     Active Substance: FUROSEMIDE
     Dosage: 10 MILLIGRAM
     Route: 042
     Dates: start: 20220521, end: 20220521
  21. OSTEOCARE [Concomitant]
     Active Substance: CALCIUM\CHOLECALCIFEROL\MAGNESIUM\ZINC
     Dosage: 1 UNK
     Route: 048
     Dates: start: 20220523, end: 20220611
  22. SULFAMETHOXAZOLE\TRIMETHOPRIM [Concomitant]
     Active Substance: SULFAMETHOXAZOLE\TRIMETHOPRIM
     Dosage: 1 UNK
     Route: 048
     Dates: start: 20220505, end: 20220511

REACTIONS (1)
  - Posterior reversible encephalopathy syndrome [Recovered/Resolved]

NARRATIVE: CASE EVENT DATE: 20220524
